FAERS Safety Report 11852314 (Version 2)
Quarter: 2016Q1

REPORT INFORMATION
  Report Type: Spontaneous
  Country: US (occurrence: US)
  Receive Date: 20151218
  Receipt Date: 20160111
  Transmission Date: 20160526
  Serious: Yes (Other)
  Sender: FDA-Public Use
  Company Number: US-LPDUSPRD-20151014

PATIENT
  Age: 64 Year
  Sex: Male

DRUGS (3)
  1. CYCLOSPORINE INJECTION, USP (866-10) [Suspect]
     Active Substance: CYCLOSPORINE
     Dosage: DOSE NOT PROVIDED
     Route: 065
     Dates: start: 201109
  2. CYTARABINE. [Suspect]
     Active Substance: CYTARABINE
     Dosage: DOSE NOT PROVIDED
     Route: 065
     Dates: start: 201109
  3. DAUNORUBICIN [Suspect]
     Active Substance: DAUNORUBICIN
     Dosage: DOSE NOT PROVIDED
     Route: 065
     Dates: start: 201109

REACTIONS (5)
  - Clostridium difficile colitis [Unknown]
  - Bacteraemia [Unknown]
  - Febrile neutropenia [Unknown]
  - Adrenal insufficiency [Unknown]
  - Sepsis [Unknown]
